FAERS Safety Report 5894064-6 (Version None)
Quarter: 2008Q3

REPORT INFORMATION
  Report Type: 
  Country: None (occurrence: None)
  Receive Date: 20080922
  Receipt Date: 20080911
  Transmission Date: 20090109
  Serious: Yes (Disabling, Other)
  Sender: FDA-Public Use
  Company Number: 2008011029

PATIENT
  Age: 52 Year
  Sex: Female
  Weight: 83.0083 kg

DRUGS (3)
  1. NEOSPORIN [Suspect]
     Indication: POSTOPERATIVE CARE
     Dosage: SLIGHT, SEVERAL TIMES DAILY, TOPICAL
     Route: 061
     Dates: start: 20080212, end: 20080214
  2. PREDNISONE [Concomitant]
  3. DIPHENHYDRAMINE HCL [Concomitant]

REACTIONS (11)
  - APPLICATION SITE BURN [None]
  - APPLICATION SITE PAIN [None]
  - APPLICATION SITE SWELLING [None]
  - DRUG HYPERSENSITIVITY [None]
  - HYPOPHAGIA [None]
  - INFECTION [None]
  - LIP DISCOLOURATION [None]
  - LIP EXFOLIATION [None]
  - OEDEMA MOUTH [None]
  - RASH [None]
  - SPEECH DISORDER [None]
